FAERS Safety Report 4599527-1 (Version None)
Quarter: 2005Q1

REPORT INFORMATION
  Report Type: 
  Country: None (occurrence: None)
  Receive Date: 20050307
  Receipt Date: 20050224
  Transmission Date: 20050727
  Serious: Yes (Hospitalization, Other)
  Sender: FDA-Public Use
  Company Number: US-JNJFOC-20050107135

PATIENT
  Sex: Female
  Weight: 56.7 kg

DRUGS (3)
  1. TOPAMAX [Suspect]
     Indication: MIGRAINE PROPHYLAXIS
     Route: 049
  2. PAMELOR [Concomitant]
     Indication: MIGRAINE
     Route: 065
  3. BIODENTICAL HORMONES [Concomitant]
     Indication: HORMONE REPLACEMENT THERAPY
     Route: 065

REACTIONS (6)
  - DIPLEGIA [None]
  - DIZZINESS [None]
  - HEADACHE [None]
  - HYPOAESTHESIA [None]
  - HYPOKINESIA [None]
  - TACHYCARDIA [None]
